FAERS Safety Report 8447877-0 (Version None)
Quarter: 2012Q2

REPORT INFORMATION
  Report Type: 
  Country: None (occurrence: None)
  Receive Date: 20120619
  Receipt Date: 20120611
  Transmission Date: 20120825
  Serious: Yes (Hospitalization)
  Sender: FDA-Public Use
  Company Number: US-BAYER-2012-059040

PATIENT
  Age: 32 Year
  Sex: Female

DRUGS (2)
  1. YAZ [Suspect]
     Dosage: UNK
     Dates: end: 20070920
  2. BIAXIN XL [Concomitant]
     Dosage: 500 MG, 7 DAY PAC
     Dates: start: 20070619

REACTIONS (1)
  - PULMONARY EMBOLISM [None]
